FAERS Safety Report 6680926-9 (Version None)
Quarter: 2010Q2

REPORT INFORMATION
  Report Type: 
  Country: None (occurrence: None)
  Receive Date: 20100414
  Receipt Date: 20100406
  Transmission Date: 20101027
  Serious: No
  Sender: FDA-Public Use
  Company Number: US-ASTRAZENECA-2010SE14891

PATIENT
  Age: 19 Year
  Sex: Male

DRUGS (6)
  1. QUETIAPINE [Suspect]
     Indication: PSYCHOTIC DISORDER
     Route: 048
  2. CHLORPROMAZINE [Suspect]
     Indication: PSYCHOTIC DISORDER
     Route: 030
  3. CLOMIPRAMINE HCL [Concomitant]
  4. LAMOTRIGINE [Concomitant]
  5. LORAZEPAM [Concomitant]
     Route: 030
  6. DULOXETINE HYDROCHLORIDE [Concomitant]
     Indication: DEPRESSION

REACTIONS (4)
  - AKATHISIA [None]
  - BLOOD CREATINE PHOSPHOKINASE INCREASED [None]
  - EXTRAPYRAMIDAL DISORDER [None]
  - WHITE BLOOD CELL COUNT INCREASED [None]
